FAERS Safety Report 24954557 (Version 1)
Quarter: 2025Q1

REPORT INFORMATION
  Report Type: Report from Study
  Country: DE (occurrence: DE)
  Receive Date: 20250211
  Receipt Date: 20250211
  Transmission Date: 20250409
  Serious: Yes (Other)
  Sender: TEVA
  Company Number: DE-TEVA-VS-3295859

PATIENT
  Age: 14 Year
  Sex: Female

DRUGS (3)
  1. BUSULFAN [Suspect]
     Active Substance: BUSULFAN
     Indication: Bone marrow conditioning regimen
     Route: 065
  2. ZYNTEGLO [Suspect]
     Active Substance: BETIBEGLOGENE AUTOTEMCEL
     Indication: Thalassaemia beta
     Route: 065
  3. DEFERIPRONE [Concomitant]
     Active Substance: DEFERIPRONE
     Indication: Iron overload
     Route: 065

REACTIONS (2)
  - Endocrine disorder [Unknown]
  - Hypothalamo-pituitary disorder [Unknown]
